FAERS Safety Report 6139192-5 (Version None)
Quarter: 2009Q2

REPORT INFORMATION
  Report Type: 
  Country: None (occurrence: None)
  Receive Date: 20090401
  Receipt Date: 20090321
  Transmission Date: 20091009
  Serious: Yes (Life-Threatening)
  Sender: FDA-Public Use
  Company Number: US-JNJFOC-20090305977

PATIENT
  Sex: Male
  Weight: 90.72 kg

DRUGS (4)
  1. REMICADE [Suspect]
     Route: 042
  2. REMICADE [Suspect]
     Route: 042
  3. REMICADE [Suspect]
     Indication: CROHN'S DISEASE
     Route: 042
  4. 5-ASA [Concomitant]
     Dosage: ^PRIOR^ INDICATION FOR MONTHS

REACTIONS (5)
  - BACK PAIN [None]
  - CHEST DISCOMFORT [None]
  - CHILLS [None]
  - INFUSION RELATED REACTION [None]
  - MUSCULOSKELETAL STIFFNESS [None]
